FAERS Safety Report 8574327-6 (Version None)
Quarter: 2012Q3

REPORT INFORMATION
  Report Type: 
  Country: None (occurrence: None)
  Receive Date: 20120806
  Receipt Date: 20120801
  Transmission Date: 20120928
  Serious: Yes (Death, Hospitalization)
  Sender: FDA-Public Use
  Company Number: US-GILEAD-2012-0057986

PATIENT
  Sex: Male

DRUGS (2)
  1. LETAIRIS [Suspect]
     Indication: PULMONARY HYPERTENSION
     Dosage: 5 MG, UNK
     Route: 048
     Dates: start: 20120525, end: 20120704
  2. LETAIRIS [Suspect]
     Indication: IDIOPATHIC PULMONARY FIBROSIS

REACTIONS (7)
  - IDIOPATHIC PULMONARY FIBROSIS [None]
  - MULTI-ORGAN FAILURE [None]
  - FLUID RETENTION [None]
  - DYSPNOEA [None]
  - CARDIAC FAILURE [None]
  - RESPIRATORY FAILURE [None]
  - PULMONARY HYPERTENSION [None]
